FAERS Safety Report 19949283 (Version 1)
Quarter: 2021Q4

REPORT INFORMATION
  Report Type: Spontaneous
  Country: US (occurrence: US)
  Receive Date: 20211008
  Receipt Date: 20211008
  Transmission Date: 20220303
  Serious: Yes (Death)
  Sender: FDA-Public Use
  Company Number: None

PATIENT
  Sex: Male

DRUGS (2)
  1. PROLIA [Suspect]
     Active Substance: DENOSUMAB
     Indication: Osteoporosis
     Dosage: ?          OTHER FREQUENCY:EVERY 6 MONTHS;
     Route: 058
     Dates: start: 20181205
  2. VERAMYST [Concomitant]
     Active Substance: FLUTICASONE FUROATE

REACTIONS (1)
  - Death [None]
